FAERS Safety Report 4852208-9 (Version None)
Quarter: 2005Q4

REPORT INFORMATION
  Report Type: 
  Country: None (occurrence: None)
  Receive Date: 20051213
  Receipt Date: 20051205
  Transmission Date: 20060501
  Serious: Yes (Death)
  Sender: FDA-Public Use
  Company Number: JP-GLAXOSMITHKLINE-B0403110A

PATIENT
  Age: 64 Year
  Sex: Male

DRUGS (7)
  1. HEPSERA [Suspect]
     Indication: HEPATIC CIRRHOSIS
     Dosage: 10MG PER DAY
     Route: 048
     Dates: start: 20041112, end: 20050222
  2. ZEFIX [Suspect]
     Indication: HEPATIC CIRRHOSIS
     Dosage: 100MG PER DAY
     Route: 048
     Dates: start: 20020101, end: 20050222
  3. NAUZELIN [Concomitant]
     Route: 048
  4. GASMOTIN [Concomitant]
     Route: 048
  5. GASCON [Concomitant]
     Route: 048
  6. ALDACTONE [Concomitant]
     Route: 048
  7. LENDORMIN [Concomitant]
     Route: 048

REACTIONS (4)
  - ENTEROCOLITIS VIRAL [None]
  - HEPATIC FAILURE [None]
  - JAUNDICE [None]
  - RENAL FAILURE [None]
